FAERS Safety Report 21777110 (Version 2)
Quarter: 2024Q2

REPORT INFORMATION
  Report Type: Report from Study
  Country: AU (occurrence: AU)
  Receive Date: 20221226
  Receipt Date: 20240626
  Transmission Date: 20240716
  Serious: Yes (Disabling, Other)
  Sender: FDA-Public Use
  Company Number: AU-ROCHE-3247954

PATIENT
  Age: 57 Year
  Sex: Female

DRUGS (2)
  1. OCREVUS [Suspect]
     Active Substance: OCRELIZUMAB
     Indication: Multiple sclerosis
     Dosage: LAST INFUSION ON /JUN/2022
     Route: 042
     Dates: end: 20221220
  2. OCREVUS [Suspect]
     Active Substance: OCRELIZUMAB
     Route: 042
     Dates: start: 20240621

REACTIONS (4)
  - Hypoaesthesia [Not Recovered/Not Resolved]
  - Sensory disturbance [Recovering/Resolving]
  - Band sensation [Recovering/Resolving]
  - Osteomyelitis [Recovering/Resolving]
